FAERS Safety Report 6450826-8 (Version None)
Quarter: 2009Q4

REPORT INFORMATION
  Report Type: 
  Country: None (occurrence: None)
  Receive Date: 20091123
  Receipt Date: 20091118
  Transmission Date: 20100525
  Serious: Yes (Life-Threatening)
  Sender: FDA-Public Use
  Company Number: DE-B.I. PHARMACEUTICALS,INC./RIDGEFIELD-2009-DE-06911DE

PATIENT
  Sex: Female
  Weight: 71 kg

DRUGS (1)
  1. MICARDIS HCT [Suspect]
     Indication: HYPERTENSION
     Dosage: 40 MG

REACTIONS (3)
  - ANGIOEDEMA [None]
  - DYSPNOEA [None]
  - SWOLLEN TONGUE [None]
